FAERS Safety Report 21723171 (Version 1)
Quarter: 2022Q4

REPORT INFORMATION
  Report Type: Spontaneous
  Country: DE (occurrence: DE)
  Receive Date: 20221213
  Receipt Date: 20221213
  Transmission Date: 20230113
  Serious: Yes (Hospitalization)
  Sender: FDA-Public Use
  Company Number: DE-MYLANLABS-2022M1138719

PATIENT
  Age: 67 Year
  Sex: Female

DRUGS (10)
  1. CLOZAPINE [Suspect]
     Active Substance: CLOZAPINE
     Indication: Schizoaffective disorder
     Dosage: UNK
     Route: 065
  2. MELPERONE [Suspect]
     Active Substance: MELPERONE
     Indication: Schizoaffective disorder
     Dosage: UNK
     Route: 065
  3. OLANZAPINE [Suspect]
     Active Substance: OLANZAPINE
     Indication: Schizoaffective disorder
     Dosage: UNK
     Route: 065
  4. AMISULPRIDE [Suspect]
     Active Substance: AMISULPRIDE
     Indication: Schizoaffective disorder
     Dosage: UNK
     Route: 065
  5. ZIPRASIDONE [Suspect]
     Active Substance: ZIPRASIDONE
     Indication: Schizoaffective disorder
     Dosage: UNK
     Route: 065
  6. MIRTAZAPINE [Suspect]
     Active Substance: MIRTAZAPINE
     Indication: Schizoaffective disorder
     Dosage: UNK
     Route: 065
  7. DOXEPIN [Suspect]
     Active Substance: DOXEPIN
     Indication: Schizoaffective disorder
     Dosage: UNK
     Route: 065
  8. RISPERIDONE [Suspect]
     Active Substance: RISPERIDONE
     Indication: Schizoaffective disorder
     Dosage: UNK
     Route: 065
  9. PALIPERIDONE [Suspect]
     Active Substance: PALIPERIDONE
     Indication: Schizoaffective disorder
     Dosage: UNK
     Route: 065
  10. BENPERIDOL [Suspect]
     Active Substance: BENPERIDOL
     Indication: Schizoaffective disorder
     Dosage: UNK
     Route: 065

REACTIONS (1)
  - Drug ineffective [Unknown]
